FAERS Safety Report 25318361 (Version 1)
Quarter: 2025Q2

REPORT INFORMATION
  Report Type: Spontaneous
  Country: CH (occurrence: CH)
  Receive Date: 20250515
  Receipt Date: 20250515
  Transmission Date: 20250717
  Serious: Yes (Other)
  Sender: CADILA
  Company Number: CH-CPL-005314

PATIENT
  Age: 87 Year
  Sex: Male

DRUGS (8)
  1. VENLAFAXINE [Suspect]
     Active Substance: VENLAFAXINE HYDROCHLORIDE
     Indication: Depression
     Dates: start: 20190912, end: 20230301
  2. RIVAROXABAN [Concomitant]
     Active Substance: RIVAROXABAN
  3. CANDESARTAN [Concomitant]
     Active Substance: CANDESARTAN
  4. ROSUVASTATIN [Concomitant]
     Active Substance: ROSUVASTATIN
  5. MIRTAZAPINE [Concomitant]
     Active Substance: MIRTAZAPINE
  6. DUTASTERIDE [Concomitant]
     Active Substance: DUTASTERIDE
  7. EMPAGLIFLOZIN [Concomitant]
     Active Substance: EMPAGLIFLOZIN
  8. VENLAFAXINE [Suspect]
     Active Substance: VENLAFAXINE HYDROCHLORIDE
     Indication: Depression
     Dates: start: 20240301

REACTIONS (5)
  - Hypertension [Recovering/Resolving]
  - Cardiac failure [Recovered/Resolved]
  - Left ventricular hypertrophy [Recovered/Resolved]
  - Atrial fibrillation [Recovered/Resolved]
  - Condition aggravated [Recovered/Resolved]
